FAERS Safety Report 10359407 (Version 2)
Quarter: 2014Q3

REPORT INFORMATION
  Report Type: Spontaneous
  Country: FR (occurrence: FR)
  Receive Date: 20140804
  Receipt Date: 20140908
  Transmission Date: 20150326
  Serious: Yes (Life-Threatening, Hospitalization, Other)
  Sender: FDA-Public Use
  Company Number: FR-AMGEN-FRASP2014058758

PATIENT
  Age: 68 Year
  Sex: Male

DRUGS (10)
  1. CORTANCYL [Concomitant]
     Active Substance: PREDNISONE
     Indication: RHEUMATOID ARTHRITIS
     Dosage: 5 MG, DAILY
     Route: 048
     Dates: start: 2003, end: 201406
  2. CRESTOR [Concomitant]
     Active Substance: ROSUVASTATIN CALCIUM
     Dosage: 5 MG, DAILY
  3. AMLODIPINE W/OLMESARTAN MEDOXOMIL [Concomitant]
     Dosage: 1 DF, DAILY
  4. KARDEGIC [Concomitant]
     Active Substance: ASPIRIN LYSINE
     Dosage: 75 MG, UNK
  5. ENBREL [Suspect]
     Active Substance: ETANERCEPT
     Dosage: 50MG EVERY OTHER WEEK
     Route: 065
     Dates: start: 201102, end: 20140707
  6. NOVATREX ^LEDERLE^ [Concomitant]
     Indication: RHEUMATOID ARTHRITIS
     Dosage: 10 MG, WEEKLY
     Dates: start: 2003, end: 201406
  7. CORTANCYL [Concomitant]
     Active Substance: PREDNISONE
     Dosage: 7.5 MG, DAILY
     Dates: start: 201407
  8. SPECIAFOLDINE [Concomitant]
     Active Substance: FOLIC ACID
     Dosage: 10 MG, WEEKLY
  9. ENBREL [Suspect]
     Active Substance: ETANERCEPT
     Indication: RHEUMATOID ARTHRITIS
     Dosage: 50 MG, WEEKLY
     Route: 065
     Dates: start: 200304, end: 201102
  10. NOVATREX ^LEDERLE^ [Concomitant]
     Dosage: 7.5 MG, WEEKLY
     Dates: start: 201407

REACTIONS (2)
  - Oesophageal adenocarcinoma [Not Recovered/Not Resolved]
  - Oesophageal stenosis [Unknown]

NARRATIVE: CASE EVENT DATE: 201406
